FAERS Safety Report 10676109 (Version 1)
Quarter: 2014Q4

REPORT INFORMATION
  Report Type: Spontaneous
  Country: JP (occurrence: JP)
  Receive Date: 20141226
  Receipt Date: 20141226
  Transmission Date: 20150529
  Serious: Yes (Other)
  Sender: FDA-Public Use
  Company Number: JP-CIPLA LTD.-2014JP02740

PATIENT

DRUGS (3)
  1. GEMCITABINE [Suspect]
     Active Substance: GEMCITABINE\GEMCITABINE HYDROCHLORIDE
     Indication: PANCREATIC CARCINOMA
     Dosage: 400 MG/M2 (LEVEL 1, 2), OVER 30 MIN AT DAYS 1 AND 8
     Route: 042
  2. GEMCITABINE [Suspect]
     Active Substance: GEMCITABINE\GEMCITABINE HYDROCHLORIDE
     Dosage: 600 MG/M2 (LEVEL 3), OVER 30 MIN AT DAYS 1 AND 8
     Route: 042
  3. RADIOTHERAPY [Suspect]
     Active Substance: RADIATION THERAPY
     Indication: PANCREATIC CARCINOMA
     Dosage: 1.5 GY WITH A MINIMAL 6 H INTERVAL BETWEEN FRACTIONS, BID

REACTIONS (1)
  - Metastases to liver [Unknown]
